FAERS Safety Report 4391438-X (Version None)
Quarter: 2004Q3

REPORT INFORMATION
  Report Type: 
  Country: None (occurrence: None)
  Receive Date: 20040707
  Receipt Date: 20040518
  Transmission Date: 20050211
  Serious: Yes (Other)
  Sender: FDA-Public Use
  Company Number: JP-GLAXOSMITHKLINE-B0333527A

PATIENT
  Age: 31 Year
  Sex: Male
  Weight: 81 kg

DRUGS (8)
  1. PAXIL [Suspect]
     Dosage: 10MG TWICE PER DAY
     Route: 048
     Dates: start: 20030426, end: 20030525
  2. PAXIL [Suspect]
     Dosage: 5MG TWICE PER DAY
     Route: 048
     Dates: start: 20030526
  3. FLUVOXAMINE MALEATE [Suspect]
     Indication: DEPRESSION
     Dosage: 50MG TWICE PER DAY
     Route: 048
     Dates: start: 20030219, end: 20030425
  4. SULPIRIDE [Suspect]
     Indication: DEPRESSION
     Dosage: 15MG TWICE PER DAY
     Route: 048
     Dates: start: 20030201, end: 20030425
  5. SULPIRIDE [Suspect]
     Dosage: 10MG TWICE PER DAY
     Route: 048
     Dates: start: 20030426, end: 20030525
  6. CLOXAZOLAM [Concomitant]
     Indication: ANXIETY
     Dosage: 2MG PER DAY
     Route: 048
     Dates: start: 20030201
  7. ALLOPURINOL [Concomitant]
     Dosage: 100MG PER DAY
     Route: 048
     Dates: start: 20030208
  8. URSODEOXYCHOLIC ACID [Concomitant]
     Indication: HEPATIC FUNCTION ABNORMAL
     Dosage: 150MG PER DAY
     Route: 048
     Dates: start: 20030208, end: 20040124

REACTIONS (3)
  - AGGRESSION [None]
  - IMPULSIVE BEHAVIOUR [None]
  - IRRITABILITY [None]
